FAERS Safety Report 4652830-9 (Version None)
Quarter: 2005Q2

REPORT INFORMATION
  Report Type: 
  Country: None (occurrence: None)
  Receive Date: 20050427
  Receipt Date: 20050411
  Transmission Date: 20051028
  Serious: Yes (Hospitalization)
  Sender: FDA-Public Use
  Company Number: 2005-00757

PATIENT
  Age: 61 Year
  Sex: Male

DRUGS (1)
  1. BCG- IT (CONNAUGHT), AVENTIS PASTEUR LTD., LOT NOT REP,  I2 [Suspect]
     Indication: BLADDER CANCER
     Dosage: (81.0 MG), I.VES., BLADDER
     Route: 043
     Dates: start: 20050325, end: 20050401

REACTIONS (4)
  - HYPERSENSITIVITY [None]
  - PYREXIA [None]
  - TUBERCULOSIS [None]
  - WHITE BLOOD CELL COUNT INCREASED [None]
